FAERS Safety Report 21954883 (Version 1)
Quarter: 2023Q1

REPORT INFORMATION
  Report Type: Spontaneous
  Country: US (occurrence: US)
  Receive Date: 20230205
  Receipt Date: 20230205
  Transmission Date: 20230417
  Serious: Yes (Death, Hospitalization, Other)
  Sender: FDA-Public Use
  Company Number: US-AMGEN-USASP2023018426

PATIENT
  Age: 57 Year
  Sex: Male

DRUGS (3)
  1. SOTORASIB [Suspect]
     Active Substance: SOTORASIB
     Indication: Non-small cell lung cancer metastatic
     Dosage: UNK
     Route: 065
  2. SOTORASIB [Suspect]
     Active Substance: SOTORASIB
     Indication: K-ras gene mutation
  3. ENTRECTINIB [Concomitant]
     Active Substance: ENTRECTINIB
     Indication: Non-small cell lung cancer metastatic
     Dosage: UNK

REACTIONS (5)
  - Haemorrhage intracranial [Fatal]
  - Non-small cell lung cancer metastatic [Unknown]
  - Cerebral haemorrhage [Recovering/Resolving]
  - Pneumonia [Unknown]
  - Platelet count decreased [Unknown]
